FAERS Safety Report 21457978 (Version 2)
Quarter: 2022Q4

REPORT INFORMATION
  Report Type: Spontaneous
  Country: None (occurrence: GB)
  Receive Date: 20221014
  Receipt Date: 20221014
  Transmission Date: 20230113
  Serious: Yes (Hospitalization, Other)
  Sender: FDA-Public Use
  Company Number: GB-B.Braun Medical Inc.-2133844

PATIENT

DRUGS (8)
  1. BUPIVACAINE HYDROCHLORIDE WITH DEXTROSE [Suspect]
     Active Substance: BUPIVACAINE HYDROCHLORIDE
  2. ROCURONIUM [Suspect]
     Active Substance: ROCURONIUM BROMIDE
  3. PROPOFOL [Suspect]
     Active Substance: PROPOFOL
  4. BUPIVACAINE [Suspect]
     Active Substance: BUPIVACAINE
  5. SEVOFLURANE [Suspect]
     Active Substance: SEVOFLURANE
  6. FENTANYL [Suspect]
     Active Substance: FENTANYL
  7. MORPHINE SULFATE [Suspect]
     Active Substance: MORPHINE SULFATE
  8. ACETAMINOPHEN [Suspect]
     Active Substance: ACETAMINOPHEN

REACTIONS (7)
  - Haemorrhage [Unknown]
  - Agitation [Unknown]
  - Respiratory depression [Unknown]
  - Cyanosis [Unknown]
  - Depressed level of consciousness [Unknown]
  - Blood pressure decreased [Unknown]
  - Incorrect dose administered [Unknown]
